FAERS Safety Report 5332064-5 (Version None)
Quarter: 2007Q2

REPORT INFORMATION
  Report Type: 
  Country: None (occurrence: None)
  Receive Date: 20070518
  Receipt Date: 20070514
  Transmission Date: 20071010
  Serious: Yes (Other)
  Sender: FDA-Public Use
  Company Number: 2007SP000427

PATIENT
  Age: 70 Year
  Sex: Female
  Weight: 73 kg

DRUGS (9)
  1. NITRO-DUR [Suspect]
     Indication: ANGINA PECTORIS
     Dosage: 0.4 MG; QH; TOP
     Route: 061
  2. METOPROLOL (CON.) [Concomitant]
  3. ASAPHEN (CON.) [Concomitant]
  4. SLOW-K (CON.) [Concomitant]
  5. AVANDIA (CON.) [Concomitant]
  6. SEROQUEL (CON.) [Concomitant]
  7. LORAZEPAM (CON.) [Concomitant]
  8. ALTACE (CON.) [Concomitant]
  9. GLYBURIDE (CON.) [Concomitant]

REACTIONS (2)
  - APPLICATION SITE REACTION [None]
  - RASH [None]
